FAERS Safety Report 9502868 (Version 1)
Quarter: 2013Q1

REPORT INFORMATION
  Report Type: Spontaneous
  Country: US (occurrence: None)
  Receive Date: 20130225
  Receipt Date: 20130225
  Transmission Date: 20140127
  Serious: No
  Sender: FDA-Public Use
  Company Number: 364288

PATIENT
  Age: 61 Year
  Sex: Female

DRUGS (2)
  1. VICTOZA [Suspect]
     Route: 058
  2. LISINOPRIL [Concomitant]

REACTIONS (1)
  - Blood pressure increased [None]
